FAERS Safety Report 23192407 (Version 3)
Quarter: 2024Q1

REPORT INFORMATION
  Report Type: Report from Study
  Country: US (occurrence: US)
  Receive Date: 20231116
  Receipt Date: 20240123
  Transmission Date: 20240410
  Serious: Yes (Other)
  Sender: FDA-Public Use
  Company Number: US-JNJFOC-20231123598

PATIENT
  Age: 31 Year
  Sex: Female

DRUGS (4)
  1. SPRAVATO [Suspect]
     Active Substance: ESKETAMINE
     Indication: Depression
     Dosage: 56 MG, 1 DOSE
     Dates: start: 20230814, end: 20230814
  2. SPRAVATO [Suspect]
     Active Substance: ESKETAMINE
     Dosage: 84 MG, 10 DOSES
     Dates: start: 20230817, end: 20230927
  3. SPRAVATO [Suspect]
     Active Substance: ESKETAMINE
     Dosage: UNSPECIFIED DOSE, 1 DOSE
     Dates: start: 20231228, end: 20231228
  4. SPRAVATO [Suspect]
     Active Substance: ESKETAMINE
     Dosage: UNSPECIFIED DOSE, 1 DOSE
     Dates: start: 20240105, end: 20240105

REACTIONS (2)
  - Hip arthroplasty [Recovering/Resolving]
  - Depression [Unknown]

NARRATIVE: CASE EVENT DATE: 20230101
